FAERS Safety Report 10101984 (Version 1)
Quarter: 2014Q2

REPORT INFORMATION
  Report Type: Spontaneous
  Country: US (occurrence: US)
  Receive Date: 20140424
  Receipt Date: 20140424
  Transmission Date: 20141212
  Serious: Yes (Hospitalization)
  Sender: FDA-Public Use
  Company Number: US-BRISTOL-MYERS SQUIBB COMPANY-20633954

PATIENT
  Age: 51 Year
  Sex: Female
  Weight: 46.26 kg

DRUGS (1)
  1. IXEMPRA [Suspect]
     Indication: BREAST CANCER
     Dosage: LAST DOSE ON 07MAR14.
     Dates: start: 201305

REACTIONS (4)
  - Pneumothorax [Not Recovered/Not Resolved]
  - Pleural effusion [Not Recovered/Not Resolved]
  - Neuropathy peripheral [Not Recovered/Not Resolved]
  - Weight decreased [Not Recovered/Not Resolved]
